FAERS Safety Report 5165380-0 (Version None)
Quarter: 2006Q4

REPORT INFORMATION
  Report Type: 
  Country: None (occurrence: None)
  Receive Date: 20061206
  Receipt Date: 20061030
  Transmission Date: 20070319
  Serious: Yes (Life-Threatening, Hospitalization, Other)
  Sender: FDA-Public Use
  Company Number: 2006UW21459

PATIENT
  Age: 39 Year
  Sex: Male
  Weight: 65.9 kg

DRUGS (7)
  1. SEROQUEL [Suspect]
     Indication: BIPOLAR I DISORDER
     Route: 048
     Dates: start: 20060801
  2. SEROQUEL [Suspect]
     Route: 048
  3. SEROQUEL [Suspect]
     Route: 048
  4. LITHIUM CARBONATE [Concomitant]
  5. LAMICTAL [Concomitant]
  6. ATIVAN [Concomitant]
  7. WELLBUTRIN [Concomitant]

REACTIONS (1)
  - HYPOTENSION [None]
